FAERS Safety Report 5924049-2 (Version None)
Quarter: 2008Q4

REPORT INFORMATION
  Report Type: 
  Country: None (occurrence: None)
  Receive Date: 20081020
  Receipt Date: 20081017
  Transmission Date: 20090506
  Serious: Yes (Death, Hospitalization, Other)
  Sender: FDA-Public Use
  Company Number: PHHY2008CA14276

PATIENT
  Sex: Male

DRUGS (1)
  1. SANDOSTATIN LAR [Suspect]
     Indication: NEUROENDOCRINE CARCINOMA
     Dosage: 20 MG, QMO
     Route: 030
     Dates: start: 20080606, end: 20080926

REACTIONS (5)
  - DEATH [None]
  - HERNIA [None]
  - ONCOLOGIC COMPLICATION [None]
  - SURGERY [None]
  - UNRESPONSIVE TO STIMULI [None]
